FAERS Safety Report 19921501 (Version 2)
Quarter: 2021Q4

REPORT INFORMATION
  Report Type: Spontaneous
  Country: JP (occurrence: JP)
  Receive Date: 20211005
  Receipt Date: 20211109
  Transmission Date: 20220303
  Serious: Yes (Other)
  Sender: FDA-Public Use
  Company Number: JP-BRISTOL-MYERS SQUIBB COMPANY-BMS-2019-122245

PATIENT
  Age: 56 Year
  Sex: Male

DRUGS (1)
  1. OPDIVO [Suspect]
     Active Substance: NIVOLUMAB
     Indication: Metastatic renal cell carcinoma
     Dosage: ^240 MG/DAY^
     Route: 041

REACTIONS (4)
  - Dry mouth [Not Recovered/Not Resolved]
  - Altered state of consciousness [Recovering/Resolving]
  - Hepatic function abnormal [Recovering/Resolving]
  - Dry eye [Not Recovered/Not Resolved]
